FAERS Safety Report 25151470 (Version 1)
Quarter: 2025Q2

REPORT INFORMATION
  Report Type: Spontaneous
  Country: PL (occurrence: PL)
  Receive Date: 20250402
  Receipt Date: 20250402
  Transmission Date: 20250717
  Serious: Yes (Hospitalization, Other)
  Sender: Kenvue
  Company Number: PL-NALPROPION PHARMACEUTICALS INC.-PL-2023CUR004274

PATIENT

DRUGS (9)
  1. ACETAMINOPHEN [Interacting]
     Active Substance: ACETAMINOPHEN
     Indication: Headache
     Dosage: 1000 MG, QID
     Route: 048
  2. ACETAMINOPHEN [Interacting]
     Active Substance: ACETAMINOPHEN
     Indication: Analgesic therapy
  3. BUPROPION HYDROCHLORIDE\NALTREXONE HYDROCHLORIDE [Suspect]
     Active Substance: BUPROPION HYDROCHLORIDE\NALTREXONE HYDROCHLORIDE
     Indication: Obesity
     Dosage: STRENGTH 8/90, 1 TABLET, ONCE A DAY (FOR 2 WEEKS)
     Route: 065
  4. BUPROPION HYDROCHLORIDE\NALTREXONE HYDROCHLORIDE [Suspect]
     Active Substance: BUPROPION HYDROCHLORIDE\NALTREXONE HYDROCHLORIDE
     Dosage: STRENGTH 8/90, 2 TABLETS, TWICE DAILY
     Route: 065
  5. OZEMPIC [Interacting]
     Active Substance: SEMAGLUTIDE
     Indication: Obesity
     Dosage: 0.25 MG, WEEKLY (FOR THE FIRST TWO WEEKS)
     Route: 058
  6. OZEMPIC [Interacting]
     Active Substance: SEMAGLUTIDE
     Dosage: 1 MG, WEEKLY
     Route: 058
  7. SERTRALINE [Interacting]
     Active Substance: SERTRALINE HYDROCHLORIDE
     Indication: Depression
     Dosage: 100 MG, DAILY
     Route: 065
  8. OMEPRAZOLE SODIUM [Interacting]
     Active Substance: OMEPRAZOLE SODIUM
     Indication: Eructation
     Dosage: 40 MG, DAILY
     Route: 048
  9. OMEPRAZOLE SODIUM [Interacting]
     Active Substance: OMEPRAZOLE SODIUM
     Indication: Oesophageal pain

REACTIONS (7)
  - Oedematous pancreatitis [Recovered/Resolved]
  - Drug interaction [Recovered/Resolved]
  - Product administration error [Unknown]
  - Contraindicated product administered [Unknown]
  - Headache [Recovered/Resolved]
  - Drug titration error [Unknown]
  - Product use in unapproved indication [Unknown]
